FAERS Safety Report 5573873-7 (Version None)
Quarter: 2007Q4

REPORT INFORMATION
  Report Type: 
  Country: None (occurrence: None)
  Receive Date: 20071226
  Receipt Date: 20071214
  Transmission Date: 20080405
  Serious: Yes (Other)
  Sender: FDA-Public Use
  Company Number: US-PFIZER INC-2007087467

PATIENT
  Sex: Female
  Weight: 70.3 kg

DRUGS (8)
  1. CHANTIX [Suspect]
     Indication: SMOKING CESSATION THERAPY
     Dates: start: 20070919, end: 20071126
  2. ABILIFY [Concomitant]
  3. KLONOPIN [Concomitant]
  4. ZYRTEC [Concomitant]
  5. DILTIAZEM [Concomitant]
  6. ENALAPRIL [Concomitant]
  7. FLONASE [Concomitant]
  8. ASTELIN [Concomitant]

REACTIONS (2)
  - ANGIOPATHY [None]
  - DEPRESSION [None]
